FAERS Safety Report 8495810-8 (Version None)
Quarter: 2012Q3

REPORT INFORMATION
  Report Type: 
  Country: None (occurrence: None)
  Receive Date: 20120709
  Receipt Date: 20120702
  Transmission Date: 20120928
  Serious: Yes (Hospitalization)
  Sender: FDA-Public Use
  Company Number: PHHY2012DE055472

PATIENT
  Sex: Female
  Weight: 80 kg

DRUGS (5)
  1. CITALOPRAM HYDROBROMIDE [Concomitant]
     Indication: DEPRESSION
     Dosage: 1 DF, QD
     Route: 048
     Dates: start: 20091001
  2. GILENYA [Suspect]
     Dosage: 0.5 MG, QD
     Route: 048
     Dates: start: 20120505
  3. GILENYA [Suspect]
     Indication: MULTIPLE SCLEROSIS
     Dosage: 0.5 MG, QD
     Route: 048
     Dates: start: 20111123, end: 20120424
  4. EMSELEX [Concomitant]
     Indication: BLADDER DYSFUNCTION
     Dosage: 1 DF, BID
     Route: 048
     Dates: start: 20110303
  5. LYMPHDRAINAGE [Concomitant]
     Indication: LYMPHOEDEMA
     Dosage: TWICE A WEEK
     Dates: start: 20111001

REACTIONS (4)
  - CALCULUS URETERIC [None]
  - URINARY TRACT OBSTRUCTION [None]
  - CHOLECYSTITIS [None]
  - GASTRITIS [None]
